FAERS Safety Report 25762550 (Version 2)
Quarter: 2025Q4

REPORT INFORMATION
  Report Type: Spontaneous
  Country: US (occurrence: US)
  Receive Date: 20250904
  Receipt Date: 20251002
  Transmission Date: 20260117
  Serious: No
  Sender: ABBVIE
  Company Number: US-ABBVIE-6442735

PATIENT
  Sex: Female

DRUGS (1)
  1. HUMIRA [Suspect]
     Active Substance: ADALIMUMAB
     Indication: Colitis ulcerative
     Dosage: FORM STRENGTH - 80MG/0.8ML
     Route: 058

REACTIONS (8)
  - Contusion [Unknown]
  - Injection site erythema [Unknown]
  - Injection site papule [Unknown]
  - Pyrexia [Unknown]
  - Anaemia [Unknown]
  - Injection site warmth [Unknown]
  - Illness [Unknown]
  - Wrong technique in product usage process [Not Recovered/Not Resolved]
